FAERS Safety Report 10675204 (Version 3)
Quarter: 2015Q1

REPORT INFORMATION
  Report Type: Spontaneous
  Country: US (occurrence: US)
  Receive Date: 20141224
  Receipt Date: 20150303
  Transmission Date: 20150720
  Serious: Yes (Other)
  Sender: FDA-Public Use
  Company Number: US-GLAXOSMITHKLINE-US2014GSK041781

PATIENT
  Age: 85 Year
  Sex: Male

DRUGS (2)
  1. PROMACTA [Suspect]
     Active Substance: ELTROMBOPAG OLAMINE
     Dosage: 75 MG, QD
  2. PROMACTA [Suspect]
     Active Substance: ELTROMBOPAG OLAMINE
     Indication: ESSENTIAL THROMBOCYTHAEMIA
     Dosage: 50 MG, QD
     Dates: start: 20140731

REACTIONS (4)
  - Blindness [Unknown]
  - Hospitalisation [Unknown]
  - Eye pain [Unknown]
  - Platelet count increased [Unknown]

NARRATIVE: CASE EVENT DATE: 20141020
